FAERS Safety Report 20713503 (Version 1)
Quarter: 2022Q2

REPORT INFORMATION
  Report Type: Spontaneous
  Country: US (occurrence: None)
  Receive Date: 20220414
  Receipt Date: 20220414
  Transmission Date: 20220721
  Serious: Yes (Hospitalization)
  Sender: FDA-Public Use
  Company Number: None

PATIENT
  Age: 47 Year
  Sex: Male
  Weight: 87.5 kg

DRUGS (10)
  1. BELATACEPT [Suspect]
     Active Substance: BELATACEPT
     Indication: Renal transplant
     Dosage: OTHER FREQUENCY : EVERY 28 DAYS;?
     Route: 042
     Dates: start: 20220210
  2. albuterol 90 mcg/actuation inhaler PRN [Concomitant]
     Dates: start: 20220228
  3. calcitRIOL (ROCALTROL) 0.5 MCG capsule QD [Concomitant]
     Dates: start: 20220317
  4. calcium carbonate (TUMS) 200 mg calcium (500 mg) chewable tab(2 BID) [Concomitant]
     Dates: start: 20220318
  5. everolimus, immunosuppressive, (4mg AM 3mg PM) [Concomitant]
     Dates: start: 20220405
  6. metoprolol tartrate (LOPRESSOR) 50 MG (1 TAB bid) [Concomitant]
     Dates: start: 20220311
  7. NIFEdipine (PROCARDIA-XL) 60 MG (OSM) 24 hr tablet QD [Concomitant]
     Dates: start: 20220311
  8. pentamidine (PENTAM) 300 mg inhalation solution PRN [Concomitant]
     Dates: start: 20220325
  9. sildenafiL, pulm.hypertension, (REVATIO) 20 mg tablet PRN [Concomitant]
     Dates: start: 20210615
  10. valGANciclovir (VALCYTE) 450 mg tablet QD [Concomitant]
     Dates: start: 20220408

REACTIONS (15)
  - Abdominal pain [None]
  - Pyrexia [None]
  - Nausea [None]
  - Vomiting [None]
  - Malaise [None]
  - White blood cell count decreased [None]
  - Blood creatine increased [None]
  - Blood lactic acid increased [None]
  - Pulmonary oedema [None]
  - Complication associated with device [None]
  - Tachycardia [None]
  - Urine leukocyte esterase positive [None]
  - Acinetobacter test positive [None]
  - Escherichia test positive [None]
  - Back pain [None]

NARRATIVE: CASE EVENT DATE: 20220413
